FAERS Safety Report 11867787 (Version 1)
Quarter: 2015Q4

REPORT INFORMATION
  Report Type: Spontaneous
  Country: MY (occurrence: MY)
  Receive Date: 20151224
  Receipt Date: 20151224
  Transmission Date: 20160305
  Serious: Yes (Death)
  Sender: FDA-Public Use
  Company Number: MY-ELI_LILLY_AND_COMPANY-MY201512008103

PATIENT
  Age: 76 Year
  Sex: Female

DRUGS (5)
  1. CALCITRIOL. [Concomitant]
     Active Substance: CALCITRIOL
  2. CALCIUM [Concomitant]
     Active Substance: CALCIUM
  3. CYMBALTA [Suspect]
     Active Substance: DULOXETINE HYDROCHLORIDE
     Indication: ADJUSTMENT DISORDER
     Dosage: 30 MG, QD
     Route: 048
  4. CELECOXIB. [Concomitant]
     Active Substance: CELECOXIB
  5. SITAGLIPTIN METFORMIN [Concomitant]
     Active Substance: METFORMIN HYDROCHLORIDE\SITAGLIPTIN PHOSPHATE

REACTIONS (4)
  - Off label use [Unknown]
  - Neuroleptic malignant syndrome [Fatal]
  - Septic shock [Fatal]
  - Multi-organ failure [Fatal]

NARRATIVE: CASE EVENT DATE: 20140719
